FAERS Safety Report 9143907 (Version 1)
Quarter: 2013Q1

REPORT INFORMATION
  Report Type: Report from Study
  Country: FR (occurrence: FR)
  Receive Date: 20130306
  Receipt Date: 20130306
  Transmission Date: 20140127
  Serious: Yes (Other)
  Sender: FDA-Public Use
  Company Number: FR-ROCHE-751574

PATIENT
  Age: 52 Year
  Sex: Male
  Weight: 80 kg

DRUGS (13)
  1. PEG-INTERFERON ALFA 2A [Suspect]
     Indication: HEPATITIS VIRAL
     Dosage: DRUG DISCONTINUED
     Route: 058
  2. PEG-INTERFERON ALFA 2A [Suspect]
     Route: 058
  3. PEG-INTERFERON ALFA 2A [Suspect]
     Route: 058
  4. RIBAVIRIN [Suspect]
     Indication: HEPATITIS VIRAL
     Route: 048
  5. RIBAVIRIN [Suspect]
     Route: 048
  6. RIBAVIRIN [Suspect]
     Route: 048
  7. EPOETIN BETA [Suspect]
     Indication: HAEMOLYTIC ANAEMIA
     Route: 058
     Dates: start: 20100910, end: 20110103
  8. CELLCEPT [Concomitant]
  9. METHADONE [Concomitant]
  10. RISPERDAL [Concomitant]
  11. XANAX [Concomitant]
  12. INEXIUM [Concomitant]
     Dosage: DRUG NAME REPORTED AS INEXIUM 20
     Route: 065
  13. CICLOSPORIN [Concomitant]

REACTIONS (1)
  - Thrombophlebitis [Recovered/Resolved]
